FAERS Safety Report 8177857-4 (Version None)
Quarter: 2012Q1

REPORT INFORMATION
  Report Type: 
  Country: None (occurrence: None)
  Receive Date: 20120301
  Receipt Date: 20120224
  Transmission Date: 20120608
  Serious: Yes (Death, Hospitalization)
  Sender: FDA-Public Use
  Company Number: CA-ELI_LILLY_AND_COMPANY-CA_031106423

PATIENT
  Sex: Male
  Weight: 100.6 kg

DRUGS (2)
  1. SYNTHROID [Concomitant]
     Indication: HYPOTHYROIDISM
     Dates: start: 20031106
  2. SOMATROPIN [Suspect]
     Indication: BLOOD GROWTH HORMONE
     Dosage: 2.4 MG, 6 DAYS/WEEK
     Route: 058
     Dates: start: 19970904, end: 20031114

REACTIONS (1)
  - ANAPLASTIC ASTROCYTOMA [None]
